FAERS Safety Report 8955019 (Version 1)
Quarter: 2012Q4

REPORT INFORMATION
  Report Type: 
  Country: US (occurrence: US)
  Receive Date: 20121210
  Receipt Date: 20121210
  Transmission Date: 20130627
  Serious: Yes (Death)
  Sender: FDA-Public Use
  Company Number: US-CELGENEUS-163-21880-12120879

PATIENT
  Age: 81 Year
  Sex: Female
  Weight: 74.91 kg

DRUGS (1)
  1. REVLIMID [Suspect]
     Indication: CLL
     Dosage: 5 Milligram
     Route: 048
     Dates: start: 20121001, end: 20121001

REACTIONS (1)
  - Death [Fatal]
